FAERS Safety Report 17499127 (Version 4)
Quarter: 2020Q4

REPORT INFORMATION
  Report Type: Report from Study
  Country: US (occurrence: US)
  Receive Date: 20200305
  Receipt Date: 20201208
  Transmission Date: 20210113
  Serious: No
  Sender: FDA-Public Use
  Company Number: US-AMGEN-USASP2020035827

PATIENT
  Age: 72 Year
  Sex: Female
  Weight: 77.6 kg

DRUGS (10)
  1. MODAFINIL. [Concomitant]
     Active Substance: MODAFINIL
  2. CROLOM [Concomitant]
     Active Substance: CROMOLYN SODIUM
     Dosage: INSTILL I DROP IN BOTH EYES 2 TIMES DAILLY AS
  3. FLONASE [Concomitant]
     Active Substance: FLUTICASONE PROPIONATE
  4. NORVASC [Concomitant]
     Active Substance: AMLODIPINE BESYLATE
     Dosage: 10 MILLIGRAM, QD
     Route: 048
  5. ZANTAC [Concomitant]
     Active Substance: RANITIDINE HYDROCHLORIDE
     Dosage: 150 MILLIGRAM
     Route: 048
  6. REPATHA [Suspect]
     Active Substance: EVOLOCUMAB
     Indication: HYPERCHOLESTEROLAEMIA
     Dosage: 140 MILLIGRAM, Q2WK
     Route: 058
     Dates: start: 2016
  7. ASPIRIN EC [Concomitant]
     Active Substance: ASPIRIN
     Dosage: 81 MILLIGRAM, QD
     Route: 048
  8. PENNSAID [Concomitant]
     Active Substance: DICLOFENAC SODIUM
     Dosage: UNK UNK, AS NECESSARY
  9. METROGEL [Concomitant]
     Active Substance: METRONIDAZOLE
  10. IRBESARTAN. [Concomitant]
     Active Substance: IRBESARTAN
     Dosage: 300 MILLIGRAM, QD
     Route: 048

REACTIONS (2)
  - Low density lipoprotein increased [Unknown]
  - Blood cholesterol increased [Not Recovered/Not Resolved]
